FAERS Safety Report 20877926 (Version 1)
Quarter: 2022Q2

REPORT INFORMATION
  Report Type: Spontaneous
  Country: US (occurrence: US)
  Receive Date: 20220526
  Receipt Date: 20220526
  Transmission Date: 20220721
  Serious: No
  Sender: FDA-Public Use
  Company Number: US-GALDERMA-US2021013528

PATIENT

DRUGS (1)
  1. DIFFERIN GEL [Suspect]
     Active Substance: ADAPALENE
     Indication: Product used for unknown indication
     Dosage: 1 DOSAGE FORM, QD ALL OVER EVERY NIGHT
     Route: 061

REACTIONS (4)
  - Skin burning sensation [Unknown]
  - Eye swelling [Unknown]
  - Skin exfoliation [Unknown]
  - Pain of skin [Recovered/Resolved]
